FAERS Safety Report 8206227-5 (Version None)
Quarter: 2012Q1

REPORT INFORMATION
  Report Type: 
  Country: None (occurrence: None)
  Receive Date: 20120313
  Receipt Date: 20120305
  Transmission Date: 20120608
  Serious: Yes (Other)
  Sender: FDA-Public Use
  Company Number: PHEH2012US005358

PATIENT
  Sex: Female

DRUGS (1)
  1. AREDIA [Suspect]
     Route: 042

REACTIONS (6)
  - INJURY [None]
  - EMOTIONAL DISTRESS [None]
  - PHYSICAL DISABILITY [None]
  - ANXIETY [None]
  - OSTEONECROSIS OF JAW [None]
  - PAIN [None]
